FAERS Safety Report 13906926 (Version 3)
Quarter: 2018Q2

REPORT INFORMATION
  Report Type: Spontaneous
  Country: FR (occurrence: FR)
  Receive Date: 20170825
  Receipt Date: 20180613
  Transmission Date: 20180711
  Serious: Yes (Life-Threatening, Hospitalization)
  Sender: FDA-Public Use
  Company Number: FR-PFIZER INC-2017363815

PATIENT
  Age: 24 Year
  Sex: Female
  Weight: 63 kg

DRUGS (4)
  1. TRUVADA [Concomitant]
     Active Substance: EMTRICITABINE\TENOFOVIR DISOPROXIL FUMARATE
     Dosage: UNK
     Dates: start: 20170418
  2. NORVIR [Concomitant]
     Active Substance: RITONAVIR
     Dosage: UNK
     Dates: start: 20170418
  3. DOSTINEX [Suspect]
     Active Substance: CABERGOLINE
     Indication: LACTATION INHIBITION THERAPY
     Dosage: UNK
     Route: 048
     Dates: start: 20170730, end: 20170803
  4. PREZISTA [Concomitant]
     Active Substance: DARUNAVIR ETHANOLATE
     Dosage: UNK
     Dates: start: 20170418

REACTIONS (8)
  - Toxicity to various agents [Recovered/Resolved]
  - Organising pneumonia [Recovered/Resolved]
  - Pulmonary alveolar haemorrhage [Recovered/Resolved]
  - Product use in unapproved indication [Recovered/Resolved]
  - Prescribed overdose [Recovered/Resolved]
  - Acute respiratory failure [Recovered/Resolved]
  - Drug prescribing error [Recovered/Resolved]
  - Bronchoalveolar lavage abnormal [Recovered/Resolved]

NARRATIVE: CASE EVENT DATE: 2017
